FAERS Safety Report 7914013-6 (Version None)
Quarter: 2011Q4

REPORT INFORMATION
  Report Type: 
  Country: None (occurrence: None)
  Receive Date: 20111114
  Receipt Date: 20111114
  Transmission Date: 20120403
  Serious: Yes (Hospitalization)
  Sender: FDA-Public Use
  Company Number: None

PATIENT
  Sex: Female
  Weight: 40 kg

DRUGS (4)
  1. LEUCOVORIN CALCIUM [Suspect]
     Dosage: 536 MG
     Dates: end: 20111101
  2. FLUOROURACIL [Suspect]
     Dosage: 3752 MG
     Dates: end: 20111101
  3. BEVACIZUMAB  (RHU MAB VEGF) [Suspect]
     Dosage: 200 MG
     Dates: end: 20111101
  4. ELOXATIN [Suspect]
     Dosage: 114 MG
     Dates: end: 20111101

REACTIONS (3)
  - NAUSEA [None]
  - VOMITING [None]
  - ASTHENIA [None]
